FAERS Safety Report 20606192 (Version 1)
Quarter: 2022Q1

REPORT INFORMATION
  Report Type: Spontaneous
  Country: US (occurrence: US)
  Receive Date: 20220317
  Receipt Date: 20220317
  Transmission Date: 20220423
  Serious: Yes (Death, Other)
  Sender: FDA-Public Use
  Company Number: US-ALVOGEN-2022-ALVOGEN-118877

PATIENT
  Age: 56 Year
  Sex: Male

DRUGS (5)
  1. NAPROXEN [Suspect]
     Active Substance: NAPROXEN
     Indication: Suicide attempt
  2. ETHYLENE GLYCOL [Suspect]
     Active Substance: ETHYLENE GLYCOL
     Indication: Suicide attempt
  3. DIPHENHYDRAMINE [Suspect]
     Active Substance: DIPHENHYDRAMINE
     Indication: Suicide attempt
  4. MELATONIN [Suspect]
     Active Substance: MELATONIN
     Indication: Suicide attempt
  5. QUETIAPINE [Suspect]
     Active Substance: QUETIAPINE
     Indication: Suicide attempt

REACTIONS (1)
  - Completed suicide [Fatal]
